FAERS Safety Report 20823026 (Version 1)
Quarter: 2022Q2

REPORT INFORMATION
  Report Type: Spontaneous
  Country: IN (occurrence: IN)
  Receive Date: 20220512
  Receipt Date: 20220512
  Transmission Date: 20220721
  Serious: Yes (Other)
  Sender: FDA-Public Use
  Company Number: IN-COOPERSURGICAL, INC.-IN-2022CPS001507

PATIENT
  Age: 38 Year
  Sex: Female

DRUGS (1)
  1. PARAGARD T 380A [Suspect]
     Active Substance: COPPER
     Indication: Product used for unknown indication
     Dosage: UNK
     Route: 015

REACTIONS (7)
  - Oophoritis [Recovered/Resolved]
  - Ovarian cyst [Recovered/Resolved]
  - Carbohydrate antigen 125 increased [Unknown]
  - Abdominal distension [Recovered/Resolved]
  - Haemoglobin decreased [Unknown]
  - Red blood cell sedimentation rate increased [Unknown]
  - White blood cells urine positive [Unknown]
